FAERS Safety Report 19995484 (Version 1)
Quarter: 2021Q4

REPORT INFORMATION
  Report Type: Spontaneous
  Country: NL (occurrence: NL)
  Receive Date: 20211025
  Receipt Date: 20211025
  Transmission Date: 20220304
  Serious: Yes (Other)
  Sender: FDA-Public Use
  Company Number: None

PATIENT
  Age: 81 Year
  Sex: Female
  Weight: 56 kg

DRUGS (13)
  1. LETROZOLE [Suspect]
     Active Substance: LETROZOLE
     Indication: Breast cancer
     Dosage: 2.5 MILLIGRAM, QD  (1D1)
     Dates: start: 2019, end: 20210601
  2. ALBUTEROL [Concomitant]
     Active Substance: ALBUTEROL
     Dosage: AEROSOL, 100 ?G/DOSIS (MICROGRAM PER DOSIS)
  3. CALCIUM CARBONATE\CHOLECALCIFEROL [Concomitant]
     Active Substance: CALCIUM CARBONATE\CHOLECALCIFEROL
     Dosage: KAUWTABLET, 2,5 G (GRAM)/880 EENHEDEN
  4. SIMVASTATIN [Concomitant]
     Active Substance: SIMVASTATIN
     Dosage: FILMOMHULDE TABLET, 40 MG (MILLIGRAM)
  5. DEXTRAN 70 W/HYPROMELLOSE [Concomitant]
     Dosage: OOGDRUPPELS, 1/3 MG/ML (MILLIGRAM PER MILLILITER)
  6. PANTOPRAZOLE [Concomitant]
     Active Substance: PANTOPRAZOLE
     Dosage: MAAGSAPRESISTENTE TABLET, 20 MG (MILLIGRAM)
  7. CLOPIDOGREL [Concomitant]
     Active Substance: CLOPIDOGREL BISULFATE
     Dosage: TABLET, 75 MG (MILLIGRAM)
  8. METOPROLOL SUCCINATE [Concomitant]
     Active Substance: METOPROLOL SUCCINATE
     Dosage: TABLET MET GEREGULEERDE AFGIFTE, 100 MG (MILLIGRAM)
  9. OLODATEROL HYDROCHLORIDE\TIOTROPIUM BROMIDE MONOHYDRATE [Concomitant]
     Active Substance: OLODATEROL HYDROCHLORIDE\TIOTROPIUM BROMIDE MONOHYDRATE
     Dosage: VERNEVELVLOEISTOF, 2,5/2,5 ?G/DOSIS (MICROGRAM PER DOSIS)
  10. COSMETICS [Concomitant]
     Active Substance: COSMETICS
     Dosage: CREME
  11. AMILORIDE HCL W/ HYDROCHLOROTHIAZIDE [Concomitant]
     Active Substance: AMILORIDE HYDROCHLORIDE\HYDROCHLOROTHIAZIDE
     Dosage: TABLET, 5/50 MG (MILLIGRAM)
  12. TEMAZEPAM [Concomitant]
     Active Substance: TEMAZEPAM
     Dosage: CAPSULE, 10 MG (MILLIGRAM)
  13. MIRTAZAPINE [Concomitant]
     Active Substance: MIRTAZAPINE
     Dosage: TABLET, 15 MG (MILLIGRAM)

REACTIONS (3)
  - Cognitive disorder [Recovering/Resolving]
  - Depressed mood [Recovering/Resolving]
  - Gait disturbance [Recovering/Resolving]
